FAERS Safety Report 6242122-9 (Version None)
Quarter: 2009Q2

REPORT INFORMATION
  Report Type: 
  Country: None (occurrence: None)
  Receive Date: 20090624
  Receipt Date: 20080307
  Transmission Date: 20091009
  Serious: Yes (Other)
  Sender: FDA-Public Use
  Company Number: US-ASTRAZENECA-2007UW14730

PATIENT
  Age: 663 Month
  Sex: Female
  Weight: 47.6 kg

DRUGS (14)
  1. SEROQUEL [Suspect]
     Indication: BIPOLAR DISORDER
     Dosage: 100 - 200 MG
     Route: 048
     Dates: start: 20030310
  2. SEROQUEL [Suspect]
     Indication: DEPRESSION
     Dosage: 100 - 200 MG
     Route: 048
     Dates: start: 20030310
  3. SEROQUEL [Suspect]
     Route: 048
     Dates: start: 20031201, end: 20040701
  4. SEROQUEL [Suspect]
     Route: 048
     Dates: start: 20031201, end: 20040701
  5. ZYPREXA [Concomitant]
     Dates: start: 20020101, end: 20040101
  6. LITHIUM CARBONATE [Concomitant]
     Dates: start: 19950101, end: 19970101
  7. COUMADIN [Concomitant]
     Dates: start: 20040212
  8. LEXAPRO [Concomitant]
     Dates: start: 20040212
  9. ZETIA [Concomitant]
     Dates: start: 20040212
  10. ASPIRIN [Concomitant]
     Dates: start: 20040212
  11. LOPRESSOR [Concomitant]
     Dates: start: 20040212
  12. ZOCOR [Concomitant]
     Dates: start: 20040212
  13. NITROSTAT [Concomitant]
     Route: 060
     Dates: start: 20040212
  14. HYZAAR [Concomitant]
     Dosage: 50 / 12.5 MG EVERY DAY
     Dates: start: 20040525

REACTIONS (5)
  - APPENDICECTOMY [None]
  - BIOPSY BREAST [None]
  - DIABETES MELLITUS [None]
  - DYSLIPIDAEMIA [None]
  - ROTATOR CUFF REPAIR [None]
